FAERS Safety Report 17986760 (Version 1)
Quarter: 2020Q3

REPORT INFORMATION
  Report Type: Spontaneous
  Country: FR (occurrence: FR)
  Receive Date: 20200706
  Receipt Date: 20200706
  Transmission Date: 20201103
  Serious: Yes (Other)
  Sender: FDA-Public Use
  Company Number: NVSC2020FR189154

PATIENT

DRUGS (4)
  1. FLUDARABINE PHOSPHATE. [Suspect]
     Active Substance: FLUDARABINE PHOSPHATE
     Indication: MANTLE CELL LYMPHOMA
     Dosage: UNK
     Route: 065
  2. TORISEL [Suspect]
     Active Substance: TEMSIROLIMUS
     Indication: MANTLE CELL LYMPHOMA
     Dosage: 25 MG DOSE LEVEL, (AT DAY 2, 8 AND 15)
     Route: 042
  3. RITUXIMAB. [Suspect]
     Active Substance: RITUXIMAB
     Indication: MANTLE CELL LYMPHOMA
     Dosage: UNK
     Route: 065
  4. CYCLOPHOSPHAMIDE. [Suspect]
     Active Substance: CYCLOPHOSPHAMIDE
     Indication: MANTLE CELL LYMPHOMA
     Route: 065

REACTIONS (4)
  - Thrombocytopenia [Unknown]
  - Mantle cell lymphoma [Unknown]
  - Malignant neoplasm progression [Unknown]
  - Product use in unapproved indication [Unknown]
